FAERS Safety Report 22736751 (Version 10)
Quarter: 2023Q4

REPORT INFORMATION
  Report Type: Spontaneous
  Country: CA (occurrence: CA)
  Receive Date: 20230721
  Receipt Date: 20231120
  Transmission Date: 20240110
  Serious: Yes (Other)
  Sender: FDA-Public Use
  Company Number: CA-PFIZER INC-202300190384

PATIENT
  Age: 19 Year
  Sex: Female

DRUGS (2)
  1. ABRILADA [Suspect]
     Active Substance: ADALIMUMAB-AFZB
     Indication: Colitis ulcerative
     Dosage: 160 MG (1 DF), W0 160MG, W2 80MG, AND 40 MG EVERY OTHER WEEK -PREFILLED SYRINGE
     Route: 058
     Dates: start: 20230323, end: 20230721
  2. ABRILADA [Suspect]
     Active Substance: ADALIMUMAB-AFZB
     Dosage: 1 DF, WEEKLY (160MG WEEKLY X 2, 80MG WEEKLY BEYOND)
     Route: 058

REACTIONS (20)
  - Haemorrhage [Recovering/Resolving]
  - Therapeutic response shortened [Unknown]
  - Malaise [Unknown]
  - Nasopharyngitis [Unknown]
  - Ear infection [Recovering/Resolving]
  - Ear pain [Unknown]
  - Stomatitis [Unknown]
  - Condition aggravated [Not Recovered/Not Resolved]
  - Respiratory tract congestion [Unknown]
  - Vomiting [Unknown]
  - Headache [Unknown]
  - Depressed mood [Not Recovered/Not Resolved]
  - Anxiety [Not Recovered/Not Resolved]
  - Nausea [Not Recovered/Not Resolved]
  - Inflammation [Not Recovered/Not Resolved]
  - Stress [Recovering/Resolving]
  - Sleep disorder [Unknown]
  - Flatulence [Unknown]
  - Off label use [Unknown]
  - Off label use [Unknown]

NARRATIVE: CASE EVENT DATE: 20230101
